FAERS Safety Report 13697464 (Version 1)
Quarter: 2017Q2

REPORT INFORMATION
  Report Type: Spontaneous
  Country: US (occurrence: US)
  Receive Date: 20170628
  Receipt Date: 20170628
  Transmission Date: 20170830
  Serious: Yes (Other)
  Sender: FDA-Public Use
  Company Number: None

PATIENT
  Age: 35 Year
  Sex: Male
  Weight: 97.52 kg

DRUGS (1)
  1. LEVOFLOXACIN, 500MG DAILY [Suspect]
     Active Substance: LEVOFLOXACIN
     Indication: SINUSITIS BACTERIAL
     Route: 048

REACTIONS (2)
  - Fatigue [None]
  - Tendonitis [None]

NARRATIVE: CASE EVENT DATE: 20170616
